FAERS Safety Report 7792675-4 (Version None)
Quarter: 2011Q3

REPORT INFORMATION
  Report Type: 
  Country: None (occurrence: None)
  Receive Date: 20110930
  Receipt Date: 20110930
  Transmission Date: 20111222
  Serious: Yes (Disabling)
  Sender: FDA-Public Use
  Company Number: None

PATIENT
  Sex: Female
  Weight: 58.9676 kg

DRUGS (1)
  1. GABAPENTIN [Suspect]
     Dosage: CAPSULE TWICE DAILY ORAL
     Route: 048
     Dates: start: 20110602, end: 20110805

REACTIONS (4)
  - SLEEP DISORDER [None]
  - NERVOUSNESS [None]
  - DYSKINESIA [None]
  - MUSCLE TIGHTNESS [None]
